FAERS Safety Report 9301638 (Version 1)
Quarter: 2013Q2

REPORT INFORMATION
  Report Type: Spontaneous
  Country: US (occurrence: US)
  Receive Date: 20130521
  Receipt Date: 20130521
  Transmission Date: 20140414
  Serious: Yes (Hospitalization)
  Sender: FDA-Public Use
  Company Number: US-AMGEN-USASP2013035436

PATIENT
  Age: 55 Year
  Sex: Male
  Weight: 65.76 kg

DRUGS (5)
  1. ENBREL [Suspect]
     Indication: PRODUCT USED FOR UNKNOWN INDICATION
     Dosage: 50 MG, QWK
     Route: 058
  2. LEVEMIR [Concomitant]
     Dosage: UNK
  3. LOVAZA [Concomitant]
     Dosage: 30 MG, UNK
  4. PIOGLITAZONE [Concomitant]
     Dosage: 30 MG, UNK
  5. OXYCONTIN [Concomitant]
     Dosage: 20 MG, UNK

REACTIONS (1)
  - Pneumonia [Recovered/Resolved]
